FAERS Safety Report 10065489 (Version 1)
Quarter: 2014Q2

REPORT INFORMATION
  Report Type: Spontaneous
  Country: US (occurrence: None)
  Receive Date: 20140401
  Receipt Date: 20140401
  Transmission Date: 20141212
  Serious: Yes (Other)
  Sender: FDA-Public Use
  Company Number: PHEH2013US020979

PATIENT
  Age: 78 Year
  Sex: Male

DRUGS (4)
  1. EXELON PATCH (RIVASTIGMINE) TRANS-THERAPEUTIC-SYSTEM [Suspect]
     Dosage: 9.5 MG (PATCH 10 CM2), DAILY, TRANSDERMAL
     Route: 062
  2. ACCUPRIL (QUINAPRIL HYDROCHLORIDE) [Concomitant]
  3. COREG (CARVEDILOL) [Concomitant]
  4. NORVASC (AMLODIPINE BESILATE) [Concomitant]

REACTIONS (6)
  - Cerebrovascular accident [None]
  - Memory impairment [None]
  - Daydreaming [None]
  - Erythema [None]
  - Skin irritation [None]
  - Drug ineffective [None]
